FAERS Safety Report 13346985 (Version 2)
Quarter: 2017Q2

REPORT INFORMATION
  Report Type: Spontaneous
  Country: NO (occurrence: NO)
  Receive Date: 20170317
  Receipt Date: 20170530
  Transmission Date: 20170830
  Serious: Yes (Other)
  Sender: FDA-Public Use
  Company Number: NO-FRESENIUS KABI-FK201702168

PATIENT
  Age: 25 Year
  Sex: Female

DRUGS (13)
  1. CYTARABINE (MANUFACTURER UNKNOWN) [Suspect]
     Active Substance: CYTARABINE
     Indication: ACUTE LYMPHOCYTIC LEUKAEMIA
     Route: 037
     Dates: start: 20160919, end: 20161115
  2. METHOTREXATE SODIUM. [Suspect]
     Active Substance: METHOTREXATE SODIUM
     Indication: LEUKOCYTOSIS
     Route: 037
     Dates: start: 20160919, end: 20161115
  3. METHOTREXATE SODIUM. [Suspect]
     Active Substance: METHOTREXATE SODIUM
     Indication: ACUTE LYMPHOCYTIC LEUKAEMIA
     Route: 037
     Dates: start: 20160919, end: 20161115
  4. PREDNISOLON [Suspect]
     Active Substance: PREDNISOLONE
     Indication: ACUTE LYMPHOCYTIC LEUKAEMIA
     Route: 037
     Dates: start: 20160628, end: 201609
  5. METHOTREXATE SODIUM. [Suspect]
     Active Substance: METHOTREXATE SODIUM
     Indication: LEUKOCYTOSIS
     Route: 037
     Dates: start: 20160628, end: 20160918
  6. PREDNISOLON [Suspect]
     Active Substance: PREDNISOLONE
     Indication: ACUTE LYMPHOCYTIC LEUKAEMIA
     Route: 037
     Dates: start: 20160919, end: 20161115
  7. PREDNISOLON [Suspect]
     Active Substance: PREDNISOLONE
     Indication: LEUKOCYTOSIS
     Route: 037
     Dates: start: 20160919, end: 20161115
  8. METHOTREXATE SODIUM. [Suspect]
     Active Substance: METHOTREXATE SODIUM
     Route: 037
     Dates: start: 20160628, end: 20160918
  9. CYTARABINE (MANUFACTURER UNKNOWN) [Suspect]
     Active Substance: CYTARABINE
     Indication: LEUKOCYTOSIS
     Route: 037
     Dates: start: 20160628, end: 201609
  10. PREDNISOLON [Suspect]
     Active Substance: PREDNISOLONE
     Indication: LEUKOCYTOSIS
     Route: 037
     Dates: start: 20160628, end: 201609
  11. METHOTREXATE SODIUM. [Suspect]
     Active Substance: METHOTREXATE SODIUM
     Indication: ACUTE LYMPHOCYTIC LEUKAEMIA
     Route: 037
     Dates: start: 20160919, end: 20161115
  12. CYTARABINE (MANUFACTURER UNKNOWN) [Suspect]
     Active Substance: CYTARABINE
     Indication: ACUTE LYMPHOCYTIC LEUKAEMIA
     Route: 037
     Dates: start: 20160628, end: 201609
  13. CYTARABINE (MANUFACTURER UNKNOWN) [Suspect]
     Active Substance: CYTARABINE
     Indication: LEUKOCYTOSIS
     Route: 037
     Dates: start: 20160919, end: 20161115

REACTIONS (8)
  - Myelomalacia [Not Recovered/Not Resolved]
  - Neoplasm recurrence [Unknown]
  - Motor dysfunction [Not Recovered/Not Resolved]
  - Neurogenic bladder [Not Recovered/Not Resolved]
  - Paralysis [Not Recovered/Not Resolved]
  - Myelopathy [Unknown]
  - Toxicity to various agents [Not Recovered/Not Resolved]
  - Anal sphincter atony [Not Recovered/Not Resolved]

NARRATIVE: CASE EVENT DATE: 201608
